FAERS Safety Report 16863071 (Version 1)
Quarter: 2019Q3

REPORT INFORMATION
  Report Type: Spontaneous
  Country: NL (occurrence: NL)
  Receive Date: 20190927
  Receipt Date: 20190927
  Transmission Date: 20191005
  Serious: Yes (Hospitalization)
  Sender: FDA-Public Use
  Company Number: NL-GUERBET-NL-20190029

PATIENT
  Age: 79 Year
  Sex: Male

DRUGS (1)
  1. LIPIODOL [Suspect]
     Active Substance: ETHIODIZED OIL
     Indication: X-RAY
     Route: 037

REACTIONS (5)
  - Vision blurred [Unknown]
  - Product residue present [Unknown]
  - Balance disorder [Unknown]
  - Incorrect route of product administration [Unknown]
  - Cerebral infarction [Unknown]
